FAERS Safety Report 5933008-5 (Version None)
Quarter: 2008Q4

REPORT INFORMATION
  Report Type: 
  Country: None (occurrence: None)
  Receive Date: 20081023
  Receipt Date: 20060627
  Transmission Date: 20090506
  Serious: Yes (Other)
  Sender: FDA-Public Use
  Company Number: 2006AL002141

PATIENT
  Age: 29 Year
  Sex: Female

DRUGS (3)
  1. GABAPENTIN [Suspect]
     Indication: EPILEPSY
     Dosage: 800 MG; TID; PO
     Route: 048
     Dates: start: 19980101
  2. GABAPENTIN [Suspect]
     Indication: NEURALGIA
     Dosage: 800 MG; TID; PO
     Route: 048
     Dates: start: 19980101
  3. CLONAZEPAM [Concomitant]

REACTIONS (3)
  - FALL [None]
  - SENSORY LOSS [None]
  - THERMAL BURN [None]
